FAERS Safety Report 9048936 (Version 1)
Quarter: 2013Q1

REPORT INFORMATION
  Report Type: Spontaneous
  Country: US (occurrence: None)
  Receive Date: 20130129
  Receipt Date: 20130129
  Transmission Date: 20140127
  Serious: No
  Sender: FDA-Public Use
  Company Number: None

PATIENT
  Age: 67 Year
  Sex: Female
  Weight: 72.58 kg

DRUGS (1)
  1. MONTELUKAST SODIUM [Suspect]
     Indication: ALLERGY TO CHEMICALS
     Dosage: ONE TABLET   PER DAY   PO?01/22/2013  --  01/24/2013
     Route: 048
     Dates: start: 20130122, end: 20130124

REACTIONS (4)
  - Product taste abnormal [None]
  - Product colour issue [None]
  - Dysgeusia [None]
  - Product substitution issue [None]
